FAERS Safety Report 22118117 (Version 3)
Quarter: 2023Q2

REPORT INFORMATION
  Report Type: Spontaneous
  Country: IL (occurrence: IL)
  Receive Date: 20230321
  Receipt Date: 20230511
  Transmission Date: 20230722
  Serious: Yes (Other)
  Sender: FDA-Public Use
  Company Number: IL-NOVOPROD-1038073

PATIENT

DRUGS (2)
  1. NOVORAPID [Suspect]
     Active Substance: INSULIN ASPART
     Indication: Product used for unknown indication
     Dosage: UNK
  2. NOVORAPID [Suspect]
     Active Substance: INSULIN ASPART
     Dosage: UNK

REACTIONS (3)
  - Acidosis [Unknown]
  - Blood glucose increased [Recovered/Resolved]
  - Product quality issue [Unknown]
